FAERS Safety Report 19678905 (Version 1)
Quarter: 2021Q3

REPORT INFORMATION
  Report Type: Report from Study
  Country: US (occurrence: US)
  Receive Date: 20210809
  Receipt Date: 20210809
  Transmission Date: 20211014
  Serious: Yes (Hospitalization)
  Sender: FDA-Public Use
  Company Number: US-EISAI MEDICAL RESEARCH-EC-2021-097295

PATIENT
  Age: 76 Year
  Sex: Male

DRUGS (2)
  1. LENVIMA [Suspect]
     Active Substance: LENVATINIB
     Indication: RENAL CELL CARCINOMA
     Route: 048
     Dates: start: 20210602, end: 20210718
  2. LENVIMA [Suspect]
     Active Substance: LENVATINIB
     Route: 048
     Dates: start: 20210719

REACTIONS (4)
  - Decreased appetite [Unknown]
  - Blood pressure systolic decreased [Unknown]
  - Renal failure [Unknown]
  - Dehydration [Unknown]

NARRATIVE: CASE EVENT DATE: 20210719
